FAERS Safety Report 9230624 (Version 1)
Quarter: 2013Q2

REPORT INFORMATION
  Report Type: Spontaneous
  Country: FR (occurrence: FR)
  Receive Date: 20130415
  Receipt Date: 20130415
  Transmission Date: 20140414
  Serious: Yes (Other)
  Sender: FDA-Public Use
  Company Number: FR-JNJFOC-20130406101

PATIENT
  Age: 37 Year
  Sex: Female

DRUGS (2)
  1. IXPRIM [Suspect]
     Indication: PRODUCT USED FOR UNKNOWN INDICATION
     Route: 048
     Dates: start: 20130115, end: 20130115
  2. IBUPROFEN [Suspect]
     Indication: TOOTHACHE
     Route: 048
     Dates: start: 20130105, end: 20130115

REACTIONS (3)
  - Cell death [Recovered/Resolved]
  - Hepatic enzyme increased [Recovered/Resolved]
  - Sphincter of Oddi dysfunction [Recovered/Resolved]
